FAERS Safety Report 5899313-6 (Version None)
Quarter: 2008Q3

REPORT INFORMATION
  Report Type: 
  Country: None (occurrence: None)
  Receive Date: 20080909
  Receipt Date: 20070919
  Transmission Date: 20090109
  Serious: Yes (Other)
  Sender: FDA-Public Use
  Company Number: HQWYE284624SEP07

PATIENT
  Age: 41 Year
  Sex: Male
  Weight: 74.91 kg

DRUGS (1)
  1. ADVIL [Suspect]
     Indication: OROPHARYNGEAL PAIN
     Dosage: 2 CAPSULE 1X PER 1 DAY, ORAL
     Route: 048
     Dates: start: 20070919, end: 20070919

REACTIONS (1)
  - ORAL DISCOMFORT [None]
